FAERS Safety Report 25679339 (Version 2)
Quarter: 2025Q4

REPORT INFORMATION
  Report Type: Spontaneous
  Country: EU (occurrence: EU)
  Receive Date: 20250814
  Receipt Date: 20251210
  Transmission Date: 20260118
  Serious: Yes (Other)
  Sender: JOHNSON AND JOHNSON
  Company Number: EU-JNJFOC-20250811450

PATIENT
  Sex: Male

DRUGS (5)
  1. PALIPERIDONE PALMITATE [Suspect]
     Active Substance: PALIPERIDONE PALMITATE
     Indication: Product used for unknown indication
     Route: 030
  2. PALIPERIDONE PALMITATE [Suspect]
     Active Substance: PALIPERIDONE PALMITATE
  3. PALIPERIDONE PALMITATE [Suspect]
     Active Substance: PALIPERIDONE PALMITATE
  4. NIMESULIDE [Concomitant]
     Active Substance: NIMESULIDE
     Indication: Product used for unknown indication
  5. BILASTINE [Concomitant]
     Active Substance: BILASTINE
     Indication: Product used for unknown indication

REACTIONS (27)
  - Diabetes mellitus [Unknown]
  - Erectile dysfunction [Unknown]
  - Retinal degeneration [Unknown]
  - Blindness [Unknown]
  - Insomnia [Unknown]
  - Fatigue [Unknown]
  - Weight increased [Unknown]
  - Constipation [Unknown]
  - Increased appetite [Unknown]
  - Injection site pain [Unknown]
  - Tachycardia [Unknown]
  - Disturbance in attention [Unknown]
  - Nasal congestion [Unknown]
  - Lacrimation increased [Unknown]
  - Eye irritation [Unknown]
  - Flatulence [Unknown]
  - Abdominal pain [Unknown]
  - Yawning [Unknown]
  - Tendon pain [Unknown]
  - Hand dermatitis [Recovering/Resolving]
  - Hiccups [Unknown]
  - Hyperthermia [Unknown]
  - Headache [Unknown]
  - Diarrhoea [Unknown]
  - Arthralgia [Unknown]
  - Myalgia [Unknown]
  - Malaise [Unknown]

NARRATIVE: CASE EVENT DATE: 20250203
